FAERS Safety Report 20426835 (Version 1)
Quarter: 2022Q1

REPORT INFORMATION
  Report Type: Spontaneous
  Country: LT (occurrence: LT)
  Receive Date: 20220204
  Receipt Date: 20220204
  Transmission Date: 20220424
  Serious: No
  Sender: FDA-Public Use
  Company Number: LT-EXELIXIS-CABO-21046020

PATIENT
  Age: 77 Year
  Sex: Female

DRUGS (2)
  1. CABOMETYX [Suspect]
     Active Substance: CABOZANTINIB S-MALATE
     Indication: Renal cell carcinoma
     Dosage: 60 MG, QD
     Route: 048
     Dates: start: 20210623, end: 20210802
  2. CABOMETYX [Suspect]
     Active Substance: CABOZANTINIB S-MALATE
     Dosage: 60 MG, QD
     Route: 048
     Dates: start: 20210929

REACTIONS (8)
  - Hiatus hernia [Unknown]
  - Condition aggravated [Unknown]
  - Resorption bone increased [Recovered/Resolved]
  - Aortic arteriosclerosis [Not Recovered/Not Resolved]
  - Arteriosclerosis coronary artery [Not Recovered/Not Resolved]
  - Gastric ulcer haemorrhage [Recovering/Resolving]
  - Nausea [Recovered/Resolved]
  - Vomiting [Recovered/Resolved]

NARRATIVE: CASE EVENT DATE: 20210802
